FAERS Safety Report 9969398 (Version 4)
Quarter: 2014Q2

REPORT INFORMATION
  Report Type: Spontaneous
  Country: EE (occurrence: EE)
  Receive Date: 20140306
  Receipt Date: 20140513
  Transmission Date: 20141212
  Serious: Yes (Hospitalization)
  Sender: FDA-Public Use
  Company Number: EE-AMGEN-ESTSP2014015673

PATIENT
  Age: 70 Year
  Sex: Male

DRUGS (4)
  1. ENBREL [Suspect]
     Indication: ANKYLOSING SPONDYLITIS
     Dosage: 50 MG, UNK
     Route: 058
     Dates: start: 20111122, end: 20140126
  2. METOPROLOL [Concomitant]
     Indication: HYPERTENSION
     Dosage: 50 MG, 1X/DAY
  3. TWYNSTA [Concomitant]
     Indication: HYPERTENSION
     Dosage: 80MG TELMISARTAN/20MG AMLODIPINE, 1X/DAY
  4. SALBUTAMOL [Concomitant]
     Indication: ASTHMA
     Dosage: UNK

REACTIONS (1)
  - Rectal adenocarcinoma [Unknown]
